FAERS Safety Report 24865821 (Version 2)
Quarter: 2025Q1

REPORT INFORMATION
  Report Type: Spontaneous
  Country: IT (occurrence: IT)
  Receive Date: 20250121
  Receipt Date: 20250131
  Transmission Date: 20250408
  Serious: Yes (Other)
  Sender: BAXTER
  Company Number: None

PATIENT
  Age: 26 Year
  Sex: Female
  Weight: 80 kg

DRUGS (2)
  1. ACETAMINOPHEN [Suspect]
     Active Substance: ACETAMINOPHEN
     Route: 042
     Dates: start: 20250103, end: 20250103
  2. METOCLOPRAMIDE HYDROCHLORIDE [Suspect]
     Active Substance: METOCLOPRAMIDE HYDROCHLORIDE
     Indication: Vomiting
     Route: 042
     Dates: start: 20250103, end: 20250103

REACTIONS (7)
  - Dystonia [Recovered/Resolved]
  - Hyperhidrosis [Recovered/Resolved]
  - Tongue oedema [Recovered/Resolved]
  - Dry mouth [Recovered/Resolved]
  - Hyporesponsive to stimuli [Recovered/Resolved]
  - Extrapyramidal disorder [Recovered/Resolved]
  - Face oedema [Recovered/Resolved]

NARRATIVE: CASE EVENT DATE: 20250103
